FAERS Safety Report 5305509-4 (Version None)
Quarter: 2007Q2

REPORT INFORMATION
  Report Type: 
  Country: None (occurrence: None)
  Receive Date: 20070424
  Receipt Date: 20070330
  Transmission Date: 20071010
  Serious: Yes (Hospitalization)
  Sender: FDA-Public Use
  Company Number: US-AMGEN-STX183652

PATIENT
  Sex: Male

DRUGS (2)
  1. ENBREL [Suspect]
     Indication: RHEUMATOID ARTHRITIS
     Route: 058
     Dates: start: 20030601
  2. METHOTREXATE [Concomitant]
     Route: 048
     Dates: start: 19950101

REACTIONS (4)
  - ACUTE MYOCARDIAL INFARCTION [None]
  - HALLUCINATION [None]
  - INFECTION [None]
  - ROCKY MOUNTAIN SPOTTED FEVER [None]
